FAERS Safety Report 23191843 (Version 3)
Quarter: 2024Q4

REPORT INFORMATION
  Report Type: Report from Study
  Country: BR (occurrence: BR)
  Receive Date: 20231116
  Receipt Date: 20241205
  Transmission Date: 20250115
  Serious: Yes (Other)
  Sender: TAKEDA
  Company Number: BR-TAKEDA-2023TUS110926

PATIENT
  Age: 43 Year
  Sex: Female

DRUGS (3)
  1. VEDOLIZUMAB [Suspect]
     Active Substance: VEDOLIZUMAB
     Indication: Crohn^s disease
     Dosage: 300 MILLIGRAM
  2. MESALAMINE [Suspect]
     Active Substance: MESALAMINE
     Indication: Crohn^s disease
     Dosage: UNK
  3. MESALAMINE [Suspect]
     Active Substance: MESALAMINE
     Indication: Crohn^s disease
     Dosage: UNK

REACTIONS (7)
  - Crohn^s disease [Not Recovered/Not Resolved]
  - Tuberculosis [Recovered/Resolved]
  - Drug ineffective [Recovered/Resolved]
  - Product availability issue [Unknown]
  - Anxiety [Unknown]
  - Swelling [Unknown]
  - Headache [Unknown]

NARRATIVE: CASE EVENT DATE: 20240201
